FAERS Safety Report 9580374 (Version 1)
Quarter: 2013Q4

REPORT INFORMATION
  Report Type: Spontaneous
  Country: US (occurrence: US)
  Receive Date: 20131002
  Receipt Date: 20131002
  Transmission Date: 20140711
  Serious: Yes (Other)
  Sender: FDA-Public Use
  Company Number: US-SA-2013SA095239

PATIENT
  Age: 51 Year
  Sex: Female
  Weight: 112.2 kg

DRUGS (28)
  1. ARAVA [Suspect]
     Indication: PRODUCT USED FOR UNKNOWN INDICATION
     Route: 065
  2. ENBREL [Suspect]
     Indication: RHEUMATOID ARTHRITIS
     Dosage: THERAPY START DATE: 10 YEARS AGO
     Route: 065
  3. ENBREL [Suspect]
     Indication: RHEUMATOID ARTHRITIS
     Route: 058
     Dates: start: 20130922
  4. ULTRAM [Suspect]
     Indication: PRODUCT USED FOR UNKNOWN INDICATION
     Route: 065
  5. METHOTREXATE [Suspect]
     Indication: PRODUCT USED FOR UNKNOWN INDICATION
     Route: 065
  6. IMURAN [Suspect]
     Indication: PRODUCT USED FOR UNKNOWN INDICATION
     Route: 065
  7. LIPITOR [Suspect]
     Indication: PRODUCT USED FOR UNKNOWN INDICATION
     Route: 065
  8. CRESTOR [Suspect]
     Indication: PRODUCT USED FOR UNKNOWN INDICATION
     Route: 065
  9. ZOCOR [Suspect]
     Indication: PRODUCT USED FOR UNKNOWN INDICATION
     Route: 065
  10. UNSPECIFIED INGREDIENT [Suspect]
     Indication: PRODUCT USED FOR UNKNOWN INDICATION
     Route: 065
  11. TRAZODONE [Suspect]
     Indication: PRODUCT USED FOR UNKNOWN INDICATION
     Route: 065
  12. AMBIEN [Concomitant]
  13. LASIX TABLET [Concomitant]
  14. ULTRACET [Concomitant]
  15. COUMADIN [Concomitant]
  16. LYRICA [Concomitant]
  17. WELLBUTRIN [Concomitant]
  18. FLEXERIL [Concomitant]
  19. CELEXA [Concomitant]
  20. CALCIUM [Concomitant]
  21. FOLIC ACID [Concomitant]
  22. CITALOPRAM HYDROBROMIDE [Concomitant]
  23. VITAMIN B12 [Concomitant]
  24. ZOLPIDEM TARTRATE [Concomitant]
  25. FUROSEMIDE [Concomitant]
  26. CITRACAL + D [Concomitant]
  27. PLAQUENIL [Concomitant]
  28. CYCLOBENZAPRINE HYDROCHLORIDE [Concomitant]

REACTIONS (43)
  - Local swelling [Unknown]
  - Deep vein thrombosis [Unknown]
  - Device occlusion [Unknown]
  - Hypercoagulation [Unknown]
  - Protein total decreased [Unknown]
  - Weight increased [Unknown]
  - White blood cell count decreased [Unknown]
  - Oropharyngeal pain [Unknown]
  - Hypercholesterolaemia [Unknown]
  - Intervertebral disc degeneration [Unknown]
  - Drug eruption [Unknown]
  - Joint stiffness [Unknown]
  - Stress [Unknown]
  - Insomnia [Unknown]
  - Spinal column stenosis [Unknown]
  - Anxiety [Unknown]
  - Angiopathy [Unknown]
  - Vitamin B12 deficiency [Unknown]
  - Joint swelling [Unknown]
  - Arthralgia [Unknown]
  - Fatigue [Unknown]
  - Pain [Unknown]
  - Lymphocytosis [Unknown]
  - Depression [Unknown]
  - Hypertension [Unknown]
  - Myalgia [Unknown]
  - Dermatitis [Unknown]
  - Abdominal pain [Unknown]
  - Haematuria [Unknown]
  - Hypergammaglobulinaemia benign monoclonal [Unknown]
  - Somnolence [Unknown]
  - Neutropenia [Unknown]
  - Injection site pain [Unknown]
  - Injection site reaction [Unknown]
  - Pneumonia [Unknown]
  - Cough [Unknown]
  - Headache [Unknown]
  - Dyspnoea [Unknown]
  - Arthritis [Unknown]
  - Leukopenia [Unknown]
  - Infection [Unknown]
  - Tinea infection [Unknown]
  - Candida infection [Recovering/Resolving]
